FAERS Safety Report 8550471-4 (Version None)
Quarter: 2012Q3

REPORT INFORMATION
  Report Type: 
  Country: None (occurrence: None)
  Receive Date: 20120730
  Receipt Date: 20120716
  Transmission Date: 20120928
  Serious: Yes (Congenital Anomaly, Other)
  Sender: FDA-Public Use
  Company Number: US-ELI_LILLY_AND_COMPANY-US201207005084

PATIENT

DRUGS (2)
  1. PROZAC [Suspect]
     Route: 064
  2. PROZAC [Suspect]
     Route: 064

REACTIONS (5)
  - DIAPHRAGMATIC HERNIA [None]
  - VERTICAL TALUS [None]
  - ATRIAL SEPTAL DEFECT [None]
  - PATENT DUCTUS ARTERIOSUS [None]
  - FOETAL EXPOSURE DURING PREGNANCY [None]
